FAERS Safety Report 9257097 (Version 1)
Quarter: 2013Q2

REPORT INFORMATION
  Report Type: Spontaneous
  Country: FR (occurrence: None)
  Receive Date: 20130424
  Receipt Date: 20130424
  Transmission Date: 20140414
  Serious: Yes (Life-Threatening)
  Sender: FDA-Public Use
  Company Number: SYM-2013-03056

PATIENT
  Age: 58 Year
  Sex: Male

DRUGS (1)
  1. XENAZINE (TETRABENAZINE) (25 MILLIGRAM, TABLETS) (TETRABENAZINE) [Suspect]
     Indication: CHOREOATHETOSIS
     Dosage: 1 IN 1 D
     Route: 048
     Dates: end: 2002

REACTIONS (3)
  - Brain stem infarction [None]
  - Diplopia [None]
  - Eyelid ptosis [None]
